FAERS Safety Report 5807530-6 (Version None)
Quarter: 2008Q3

REPORT INFORMATION
  Report Type: 
  Country: None (occurrence: None)
  Receive Date: 20080709
  Receipt Date: 20080709
  Transmission Date: 20090109
  Serious: Yes (Life-Threatening, Hospitalization, Disabling)
  Sender: FDA-Public Use
  Company Number: None

PATIENT
  Age: 61 Year
  Sex: Male

DRUGS (2)
  1. AMIODARONE HCL [Suspect]
     Dosage: 200 MG EVERY DAY PO
     Route: 048
     Dates: start: 20071215, end: 20071228
  2. WARFARIN SODIUM [Suspect]
     Dosage: 5 MG EVERY DAY PO
     Route: 048
     Dates: start: 20070101, end: 20071228

REACTIONS (2)
  - HAEMORRHAGE INTRACRANIAL [None]
  - INTERNATIONAL NORMALISED RATIO INCREASED [None]
